FAERS Safety Report 11074667 (Version 1)
Quarter: 2015Q2

REPORT INFORMATION
  Report Type: Spontaneous
  Country: US (occurrence: None)
  Receive Date: 20150428
  Receipt Date: 20150428
  Transmission Date: 20150821
  Serious: Yes (Other)
  Sender: FDA-Public Use
  Company Number: None

PATIENT
  Age: 46 Year
  Sex: Female
  Weight: 61.24 kg

DRUGS (7)
  1. DULOXETINE HCL CAPS 30MG CITRON [Suspect]
     Active Substance: DULOXETINE HYDROCHLORIDE
     Indication: NEURALGIA
     Dosage: 1 ONCE DAILY TAKEN BY MOUTH
     Route: 048
     Dates: start: 20150420, end: 20150424
  2. LYRICA [Concomitant]
     Active Substance: PREGABALIN
  3. MAXALT [Concomitant]
     Active Substance: RIZATRIPTAN BENZOATE
  4. NUCYNTA [Concomitant]
     Active Substance: TAPENTADOL HYDROCHLORIDE
  5. DULOXETINE HCL CAPS 30MG CITRON [Suspect]
     Active Substance: DULOXETINE HYDROCHLORIDE
     Indication: MYALGIA
     Dosage: 1 ONCE DAILY TAKEN BY MOUTH
     Route: 048
     Dates: start: 20150420, end: 20150424
  6. CELEBREX [Concomitant]
     Active Substance: CELECOXIB
  7. AMBIEN [Concomitant]
     Active Substance: ZOLPIDEM TARTRATE

REACTIONS (10)
  - Gastrointestinal sounds abnormal [None]
  - Burning sensation [None]
  - Skin exfoliation [None]
  - Diarrhoea [None]
  - Skin reaction [None]
  - Nausea [None]
  - Feeling hot [None]
  - Skin disorder [None]
  - Erythema [None]
  - Swelling [None]

NARRATIVE: CASE EVENT DATE: 20150423
